FAERS Safety Report 9824921 (Version 3)
Quarter: 2014Q1

REPORT INFORMATION
  Report Type: Report from Study
  Country: CA (occurrence: CA)
  Receive Date: 20140117
  Receipt Date: 20140310
  Transmission Date: 20141002
  Serious: Yes (Hospitalization)
  Sender: FDA-Public Use
  Company Number: CA-ROCHE-1333720

PATIENT
  Age: 60 Year
  Sex: Female

DRUGS (11)
  1. ACTEMRA [Suspect]
     Indication: RHEUMATOID ARTHRITIS
     Route: 042
     Dates: start: 20130502
  2. ACTEMRA [Suspect]
     Route: 042
     Dates: start: 20131106
  3. IVIG [Suspect]
     Indication: PRODUCT USED FOR UNKNOWN INDICATION
     Route: 042
  4. ZANTAC [Concomitant]
  5. METHOTREXATE [Concomitant]
  6. ASA [Concomitant]
  7. FOLIC ACID [Concomitant]
  8. CLONAZEPAM [Concomitant]
  9. CITALOPRAM [Concomitant]
  10. TYLENOL [Concomitant]
     Indication: ARTHRITIS
  11. IBUPROFEN [Concomitant]

REACTIONS (3)
  - Cerebrovascular accident [Recovered/Resolved]
  - Pneumonia [Recovered/Resolved]
  - Otitis media [Recovered/Resolved]
